FAERS Safety Report 18967656 (Version 1)
Quarter: 2021Q1

REPORT INFORMATION
  Report Type: Spontaneous
  Country: FR (occurrence: FR)
  Receive Date: 20210304
  Receipt Date: 20210304
  Transmission Date: 20210420
  Serious: Yes (Life-Threatening, Hospitalization)
  Sender: FDA-Public Use
  Company Number: FR-AMGEN-FRASP2021032531

PATIENT
  Age: 84 Year
  Sex: Female
  Weight: 50 kg

DRUGS (1)
  1. KANJINTI [Suspect]
     Active Substance: TRASTUZUMAB-ANNS
     Indication: ADENOCARCINOMA
     Dosage: 1 DOSAGE FORM
     Route: 041
     Dates: start: 20210201, end: 20210201

REACTIONS (6)
  - Blood pressure increased [Recovered/Resolved]
  - Chills [Recovered/Resolved]
  - Tachycardia [Recovered/Resolved]
  - Pelvic pain [Recovered/Resolved]
  - Myalgia [Recovered/Resolved]
  - Fear of death [Recovered/Resolved]

NARRATIVE: CASE EVENT DATE: 20210201
